FAERS Safety Report 6945187-1 (Version None)
Quarter: 2010Q3

REPORT INFORMATION
  Report Type: 
  Country: None (occurrence: None)
  Receive Date: 20100827
  Receipt Date: 20100817
  Transmission Date: 20110219
  Serious: Yes (Other)
  Sender: FDA-Public Use
  Company Number: IE-JNJFOC-20100807318

PATIENT
  Age: 25 Year
  Sex: Male

DRUGS (2)
  1. INFLIXIMAB, RECOMBINANT [Suspect]
     Indication: CROHN'S DISEASE
     Dosage: 0, 2 AND 6 WEEKS
     Route: 042
  2. AZATHIOPRINE [Concomitant]
     Indication: CROHN'S DISEASE

REACTIONS (1)
  - ANORECTAL STENOSIS [None]
